FAERS Safety Report 5411071-8 (Version None)
Quarter: 2007Q3

REPORT INFORMATION
  Report Type: 
  Country: None (occurrence: None)
  Receive Date: 20070810
  Receipt Date: 20070802
  Transmission Date: 20080115
  Serious: Yes (Other)
  Sender: FDA-Public Use
  Company Number: US-BAYER-200710767BWH

PATIENT
  Age: 40 Year
  Sex: Female
  Weight: 68 kg

DRUGS (5)
  1. AVELOX [Suspect]
     Indication: SINUSITIS
     Dosage: UNIT DOSE: 400 MG
     Route: 048
     Dates: start: 20070305
  2. AUGMENTIN '125' [Suspect]
     Route: 048
     Dates: start: 20070306
  3. PREDNISONE TAB [Concomitant]
     Dates: start: 20070401
  4. FLONASE [Concomitant]
     Dates: start: 20070401
  5. NEURONTIN [Concomitant]

REACTIONS (9)
  - ANXIETY [None]
  - CRYING [None]
  - DIZZINESS [None]
  - NEUROPATHY PERIPHERAL [None]
  - RETINOPATHY [None]
  - SYNCOPE [None]
  - TENDONITIS [None]
  - TREMOR [None]
  - VISUAL ACUITY REDUCED [None]
